FAERS Safety Report 10208624 (Version 2)
Quarter: 2014Q2

REPORT INFORMATION
  Report Type: Report from Study
  Country: FR (occurrence: FR)
  Receive Date: 20140530
  Receipt Date: 20140610
  Transmission Date: 20141212
  Serious: Yes (Death, Hospitalization)
  Sender: FDA-Public Use
  Company Number: PHHO2014FR007790

PATIENT
  Sex: 0

DRUGS (2)
  1. GLIVEC [Suspect]
     Indication: ACUTE LYMPHOCYTIC LEUKAEMIA
     Dosage: 500 MG, QD
     Route: 048
     Dates: start: 20130822
  2. GLIVEC [Suspect]
     Dosage: 400 MG, QD
     Route: 048

REACTIONS (1)
  - Pneumonia respiratory syncytial viral [Fatal]
